FAERS Safety Report 12092369 (Version 1)
Quarter: 2016Q1

REPORT INFORMATION
  Report Type: Spontaneous
  Country: US (occurrence: None)
  Receive Date: 20160217
  Receipt Date: 20160217
  Transmission Date: 20160526
  Serious: Yes (Other)
  Sender: FDA-Public Use
  Company Number: None

PATIENT
  Age: 19 Year
  Sex: Male
  Weight: 138.8 kg

DRUGS (2)
  1. PROZAC [Suspect]
     Active Substance: FLUOXETINE HYDROCHLORIDE
     Indication: TOURETTE^S DISORDER
     Dosage: 40 MG 2 TAB QD PO
     Route: 048
     Dates: start: 201009
  2. PROZAC [Suspect]
     Active Substance: FLUOXETINE HYDROCHLORIDE
     Indication: OBSESSIVE-COMPULSIVE DISORDER
     Dosage: 40 MG 2 TAB QD PO
     Route: 048
     Dates: start: 201009

REACTIONS (5)
  - Personality change [None]
  - Product substitution issue [None]
  - Anger [None]
  - Emotional disorder [None]
  - Aggression [None]

NARRATIVE: CASE EVENT DATE: 201009
